FAERS Safety Report 23501448 (Version 1)
Quarter: 2024Q1

REPORT INFORMATION
  Report Type: Spontaneous
  Country: CN (occurrence: CN)
  Receive Date: 20240208
  Receipt Date: 20240208
  Transmission Date: 20240409
  Serious: Yes (Hospitalization, Other)
  Sender: FDA-Public Use
  Company Number: None

PATIENT
  Age: 65 Year
  Sex: Female
  Weight: 45 kg

DRUGS (6)
  1. CYCLOPHOSPHAMIDE [Suspect]
     Active Substance: CYCLOPHOSPHAMIDE
     Indication: Follicular lymphoma stage I
     Dosage: 1 G, ONE TIME IN ONE DAY DILUTED WITH 0.9% SODIUM CHLORIDE 500 ML
     Route: 041
     Dates: start: 20240104, end: 20240104
  2. CYCLOPHOSPHAMIDE [Suspect]
     Active Substance: CYCLOPHOSPHAMIDE
     Indication: T-cell lymphoma stage I
  3. SODIUM CHLORIDE [Suspect]
     Active Substance: SODIUM CHLORIDE
     Indication: Medication dilution
     Dosage: (0.9%, INJECTION), 500 ML, ONE TIME IN ONE DAY, INJECTION, USED TO DILUTE CYCLOPHOSPHAMIDE 1G
     Route: 041
     Dates: start: 20240104, end: 20240104
  4. SODIUM CHLORIDE [Suspect]
     Active Substance: SODIUM CHLORIDE
     Dosage: 250 ML, ONE TIME IN ONE DAY USED TO DILUTE PIRARUBICIN HYDROCHLORIDE 60 MG
     Route: 041
     Dates: start: 20240104, end: 20240104
  5. PIRARUBICIN HYDROCHLORIDE [Suspect]
     Active Substance: PIRARUBICIN HYDROCHLORIDE
     Indication: Follicular lymphoma stage I
     Dosage: 60 MG, ONE TIME IN ONE DAY, DOSAGE FORM: POWDER DILUTED WITH 0.9% SODIUM CHLORIDE 250 ML
     Route: 041
     Dates: start: 20240104, end: 20240104
  6. PIRARUBICIN HYDROCHLORIDE [Suspect]
     Active Substance: PIRARUBICIN HYDROCHLORIDE
     Indication: T-cell lymphoma stage I

REACTIONS (1)
  - Myelosuppression [Recovering/Resolving]

NARRATIVE: CASE EVENT DATE: 20240115
